FAERS Safety Report 6251726-9 (Version None)
Quarter: 2009Q2

REPORT INFORMATION
  Report Type: 
  Country: None (occurrence: None)
  Receive Date: 20090626
  Receipt Date: 20090331
  Transmission Date: 20091009
  Serious: Yes (Other)
  Sender: FDA-Public Use
  Company Number: 624996

PATIENT
  Age: 81 Year
  Sex: Male
  Weight: 68.5 kg

DRUGS (4)
  1. XELODA [Suspect]
     Indication: COLON CANCER STAGE III
     Dosage: 1500 MG 2 PER DAY ORAL
     Route: 048
     Dates: start: 20081027
  2. LIPTIOR (ATORVASTATIN CALCIUM) [Concomitant]
  3. AVANDAMET [Concomitant]
  4. LOTREL (AMLODIPINE BESYLATE/BENAZEPRIL HYDROCHLORIDE) [Concomitant]

REACTIONS (2)
  - ABASIA [None]
  - BLISTER [None]
